FAERS Safety Report 13752231 (Version 3)
Quarter: 2021Q3

REPORT INFORMATION
  Report Type: Report from Study
  Country: US (occurrence: US)
  Receive Date: 20170713
  Receipt Date: 20210817
  Transmission Date: 20211014
  Serious: Yes (Other)
  Sender: FDA-Public Use
  Company Number: US-JAZZ-2017-US-003069

PATIENT
  Age: 40 Year
  Sex: Female

DRUGS (16)
  1. VYVANSE [Concomitant]
     Active Substance: LISDEXAMFETAMINE DIMESYLATE
  2. IRON [Concomitant]
     Active Substance: IRON
  3. COUMADINE [Concomitant]
     Active Substance: WARFARIN SODIUM
  4. XYREM [Suspect]
     Active Substance: SODIUM OXYBATE
     Indication: NARCOLEPSY
     Dosage: 2.25 G, BID
     Route: 048
     Dates: start: 201104, end: 201104
  5. VITAMIN D NOS [Concomitant]
     Active Substance: VITAMIN D NOS
  6. OXYCODONE HYDROCHLORIDE. [Concomitant]
     Active Substance: OXYCODONE HYDROCHLORIDE
  7. TRAMADOL HCL [Concomitant]
     Active Substance: TRAMADOL HYDROCHLORIDE
  8. XOPENEX HFA [Concomitant]
     Active Substance: LEVALBUTEROL TARTRATE
  9. CYMBALTA [Concomitant]
     Active Substance: DULOXETINE HYDROCHLORIDE
     Indication: PAIN
  10. COLACE [Concomitant]
     Active Substance: DOCUSATE SODIUM
  11. IBUPROFEN. [Concomitant]
     Active Substance: IBUPROFEN
  12. HYDROCHLOROTHIAZIDE. [Concomitant]
     Active Substance: HYDROCHLOROTHIAZIDE
     Dosage: UNK
     Dates: end: 201702
  13. XYREM [Suspect]
     Active Substance: SODIUM OXYBATE
     Dosage: DOSE ADJUSTMENT
     Route: 048
     Dates: start: 201104, end: 2012
  14. XYREM [Suspect]
     Active Substance: SODIUM OXYBATE
     Dosage: 4.5 G, BID
     Route: 048
     Dates: start: 2012
  15. ADVAIR HFA [Concomitant]
     Active Substance: FLUTICASONE PROPIONATE\SALMETEROL XINAFOATE
  16. DILTIAZEM. [Concomitant]
     Active Substance: DILTIAZEM

REACTIONS (4)
  - Fluid retention [Unknown]
  - Blood pressure increased [Recovering/Resolving]
  - Condition aggravated [Unknown]
  - Arthralgia [Unknown]

NARRATIVE: CASE EVENT DATE: 201701
